FAERS Safety Report 7234753-4 (Version None)
Quarter: 2010Q4

REPORT INFORMATION
  Report Type: 
  Country: None (occurrence: None)
  Receive Date: 20101130
  Receipt Date: 20090901
  Transmission Date: 20110411
  Serious: Yes (Hospitalization)
  Sender: FDA-Public Use
  Company Number: 2009SP023489

PATIENT
  Age: 21 Year
  Sex: Female
  Weight: 64.8644 kg

DRUGS (1)
  1. NUVARING [Suspect]
     Indication: CONTRACEPTION
     Dates: start: 20090301

REACTIONS (2)
  - DYSPNOEA [None]
  - VENOUS THROMBOSIS [None]
